FAERS Safety Report 19229018 (Version 2)
Quarter: 2021Q2

REPORT INFORMATION
  Report Type: Report from Study
  Country: US (occurrence: US)
  Receive Date: 20210507
  Receipt Date: 20210607
  Transmission Date: 20210717
  Serious: Yes (Hospitalization, Other)
  Sender: FDA-Public Use
  Company Number: US-GILEAD-2021-0527159

PATIENT
  Age: 61 Year
  Sex: Male

DRUGS (1)
  1. AZTREONAM LYSINE [Suspect]
     Active Substance: AZTREONAM LYSINE
     Indication: BRONCHIECTASIS
     Dosage: 75 MG, TID, EVERY OTHER MONTH
     Route: 065

REACTIONS (2)
  - Off label use [Not Recovered/Not Resolved]
  - Cystic fibrosis [Not Recovered/Not Resolved]
